FAERS Safety Report 18439126 (Version 1)
Quarter: 2020Q4

REPORT INFORMATION
  Report Type: Spontaneous
  Country: US (occurrence: US)
  Receive Date: 20201028
  Receipt Date: 20201028
  Transmission Date: 20210114
  Serious: Yes (Death, Hospitalization, Other)
  Sender: FDA-Public Use
  Company Number: US-GILEAD-2020-0501647

PATIENT
  Sex: Male

DRUGS (1)
  1. YESCARTA [Suspect]
     Active Substance: AXICABTAGENE CILOLEUCEL
     Indication: PRODUCT USED FOR UNKNOWN INDICATION
     Dosage: UNK
     Route: 042
     Dates: start: 20200821, end: 20200821

REACTIONS (7)
  - Septic shock [Unknown]
  - Somnolence [Recovered/Resolved]
  - Confusional state [Unknown]
  - Cardiogenic shock [Recovered/Resolved]
  - Aspiration [Unknown]
  - Escherichia infection [Unknown]
  - Death [Fatal]

NARRATIVE: CASE EVENT DATE: 2020
